FAERS Safety Report 15634471 (Version 1)
Quarter: 2018Q4

REPORT INFORMATION
  Report Type: Report from Study
  Country: AR (occurrence: AR)
  Receive Date: 20181119
  Receipt Date: 20181119
  Transmission Date: 20190205
  Serious: Yes (Other)
  Sender: FDA-Public Use
  Company Number: PHHY2018AR017446

PATIENT
  Sex: Male

DRUGS (1)
  1. GILENYA [Suspect]
     Active Substance: FINGOLIMOD HYDROCHLORIDE
     Indication: RELAPSING-REMITTING MULTIPLE SCLEROSIS
     Dosage: 0.5 MG, UNK
     Route: 065

REACTIONS (14)
  - Multiple sclerosis relapse [Recovered/Resolved]
  - Nervousness [Unknown]
  - Dizziness [Unknown]
  - Vertigo positional [Unknown]
  - Saccadic eye movement [Unknown]
  - Craniocerebral injury [Unknown]
  - Language disorder [Unknown]
  - Muscular weakness [Unknown]
  - Malaise [Unknown]
  - Gait disturbance [Unknown]
  - Eye movement disorder [Unknown]
  - Diplopia [Unknown]
  - Fatigue [Unknown]
  - Paranoia [Unknown]

NARRATIVE: CASE EVENT DATE: 20180126
